FAERS Safety Report 16510391 (Version 1)
Quarter: 2019Q3

REPORT INFORMATION
  Report Type: Spontaneous
  Country: US (occurrence: US)
  Receive Date: 20190701
  Receipt Date: 20190701
  Transmission Date: 20191004
  Serious: Yes (Other)
  Sender: FDA-Public Use
  Company Number: None

PATIENT
  Age: 55 Year
  Sex: Female
  Weight: 83.25 kg

DRUGS (5)
  1. TAMOXIFEN [Concomitant]
     Active Substance: TAMOXIFEN
  2. NIACIN. [Concomitant]
     Active Substance: NIACIN
  3. NERLYNX [Suspect]
     Active Substance: NERATINIB
     Indication: NEOPLASM PROPHYLAXIS
     Dosage: ?          QUANTITY:6 TABLET(S);?
     Route: 048
     Dates: start: 20190429, end: 20190617
  4. SUPER COMPLEX B [Concomitant]
  5. BIOTIN [Concomitant]
     Active Substance: BIOTIN

REACTIONS (3)
  - Skin exfoliation [None]
  - Breast cellulitis [None]
  - Diarrhoea [None]

NARRATIVE: CASE EVENT DATE: 20190617
